FAERS Safety Report 6395039-3 (Version None)
Quarter: 2009Q4

REPORT INFORMATION
  Report Type: 
  Country: None (occurrence: None)
  Receive Date: 20091009
  Receipt Date: 20090918
  Transmission Date: 20100525
  Serious: Yes (Other)
  Sender: FDA-Public Use
  Company Number: JP-PFIZER INC-2009270104

PATIENT
  Age: 56 Year

DRUGS (1)
  1. ZITHROMAC SR [Suspect]
     Indication: NASOPHARYNGITIS
     Dosage: 2 G / DAY
     Route: 048
     Dates: start: 20090816, end: 20090816

REACTIONS (1)
  - MENIERE'S DISEASE [None]
